FAERS Safety Report 15223574 (Version 1)
Quarter: 2018Q3

REPORT INFORMATION
  Report Type: Spontaneous
  Country: US (occurrence: US)
  Receive Date: 20180705
  Receipt Date: 20180705
  Transmission Date: 20181010
  Serious: No
  Sender: FDA-Public Use
  Company Number: None

PATIENT
  Age: 66 Year
  Sex: Female
  Weight: 85.5 kg

DRUGS (17)
  1. 81 MG ASPRIN [Concomitant]
  2. AZATHIOPRINE. [Concomitant]
     Active Substance: AZATHIOPRINE
  3. ELIQUIS [Concomitant]
     Active Substance: APIXABAN
  4. ASMANEX HFA [Concomitant]
     Active Substance: MOMETASONE FUROATE
  5. CALCIUM [Concomitant]
     Active Substance: CALCIUM
  6. HYDROCHLORTOHIAZIDE [Concomitant]
  7. ROSUVASTATIN CALCIUM. [Concomitant]
     Active Substance: ROSUVASTATIN CALCIUM
  8. PROAIR HFA [Concomitant]
     Active Substance: ALBUTEROL SULFATE
  9. ISOSORBIDE MOMONITRATE [Concomitant]
  10. POTASSIUM CL [Concomitant]
     Active Substance: POTASSIUM CHLORIDE
  11. VIT B3 [Concomitant]
  12. ZICAM COLD REMEDY NASAL GEL [Suspect]
     Active Substance: HOMEOPATHICS\ZINC ACETATE\ZINC GLUCONATE
     Indication: NASAL CONGESTION
     Dosage: ?          QUANTITY:1 SPRAY(S);?
     Route: 055
     Dates: start: 20170530, end: 20180705
  13. SERTRALINE [Concomitant]
     Active Substance: SERTRALINE HYDROCHLORIDE
  14. OMEPRAZOLE. [Concomitant]
     Active Substance: OMEPRAZOLE
  15. CPAP [Concomitant]
     Active Substance: DEVICE
  16. MULTAQ [Concomitant]
     Active Substance: DRONEDARONE
  17. CLONAZEPAM. [Concomitant]
     Active Substance: CLONAZEPAM

REACTIONS (3)
  - Anosmia [None]
  - Ageusia [None]
  - Rebound effect [None]

NARRATIVE: CASE EVENT DATE: 20180314
